FAERS Safety Report 5814768-0 (Version None)
Quarter: 2008Q3

REPORT INFORMATION
  Report Type: 
  Country: None (occurrence: None)
  Receive Date: 20080718
  Receipt Date: 20080711
  Transmission Date: 20090109
  Serious: Yes (Other)
  Sender: FDA-Public Use
  Company Number: GB-ROCHE-575528

PATIENT
  Sex: Female
  Weight: 102.4 kg

DRUGS (1)
  1. ORLISTAT [Suspect]
     Indication: OBESITY
     Route: 048
     Dates: start: 20070505, end: 20080528

REACTIONS (2)
  - BREAST CANCER [None]
  - HYSTERECTOMY [None]
